FAERS Safety Report 16529480 (Version 1)
Quarter: 2019Q3

REPORT INFORMATION
  Report Type: Spontaneous
  Country: NO (occurrence: NO)
  Receive Date: 20190704
  Receipt Date: 20190704
  Transmission Date: 20191004
  Serious: Yes (Other)
  Sender: FDA-Public Use
  Company Number: NO-GLAXOSMITHKLINE-NO2019120073

PATIENT
  Age: 28 Year
  Sex: Female

DRUGS (2)
  1. NICOTINELL [Suspect]
     Active Substance: NICOTINE
     Indication: EPILEPSY
     Dosage: NORMAL DOSING
     Route: 062
     Dates: start: 2007, end: 2007
  2. NICORETTE [Suspect]
     Active Substance: NICOTINE
     Indication: EPILEPSY
     Dosage: NORMAL DOSING
     Route: 062
     Dates: start: 2007, end: 2007

REACTIONS (1)
  - Anaphylactic reaction [Recovered/Resolved]

NARRATIVE: CASE EVENT DATE: 2007
